FAERS Safety Report 5190189-1 (Version None)
Quarter: 2006Q4

REPORT INFORMATION
  Report Type: 
  Country: None (occurrence: None)
  Receive Date: 20061222
  Receipt Date: 20060726
  Transmission Date: 20070319
  Serious: No
  Sender: FDA-Public Use
  Company Number: US-AMGEN-KDL187738

PATIENT
  Sex: Female

DRUGS (3)
  1. ARANESP [Suspect]
     Indication: RENAL FAILURE CHRONIC
     Dates: start: 20050501
  2. PHOSLO [Concomitant]
  3. ROCALTROL [Concomitant]

REACTIONS (2)
  - BLOOD PARATHYROID HORMONE INCREASED [None]
  - THERAPEUTIC RESPONSE DECREASED [None]
